FAERS Safety Report 8502304-X (Version None)
Quarter: 2012Q3

REPORT INFORMATION
  Report Type: 
  Country: None (occurrence: None)
  Receive Date: 20120711
  Receipt Date: 20111010
  Transmission Date: 20120928
  Serious: No
  Sender: FDA-Public Use
  Company Number: US-COVIDIEN/TYCO HEALTHCARE/MALLINCKRODT-T201101913

PATIENT
  Sex: Female
  Weight: 147.39 kg

DRUGS (9)
  1. LEXAPRO [Concomitant]
     Dosage: 40 MG, QD
  2. AMBIEN [Concomitant]
     Dosage: 10 MG, QD AT BEDTIME
  3. CELEBREX [Concomitant]
     Dosage: 400 MG, QD
  4. LISINOPRIL [Concomitant]
     Dosage: 10 MG, QD
  5. METFORMIN HCL [Concomitant]
     Indication: POLYCYSTIC OVARIES
     Dosage: 8.75 UNK, TID
  6. METHADONE HCL [Concomitant]
     Indication: PAIN
     Dosage: 5 MG, TID
  7. ZANAFLEX [Concomitant]
     Dosage: 4 MG, QID
  8. VITAMIN B12                        /00056201/ [Concomitant]
  9. OXYCODONE HCL [Suspect]
     Indication: NEUROPATHY PERIPHERAL
     Dosage: 15 MG, 1-2 Q 4-6 HRS
     Route: 048
     Dates: start: 20110801

REACTIONS (3)
  - DRUG EFFECT DECREASED [None]
  - HEADACHE [None]
  - MOOD SWINGS [None]
